FAERS Safety Report 4772451-7 (Version None)
Quarter: 2005Q3

REPORT INFORMATION
  Report Type: 
  Country: None (occurrence: None)
  Receive Date: 20050919
  Receipt Date: 20050812
  Transmission Date: 20060218
  Serious: Yes (Other)
  Sender: FDA-Public Use
  Company Number: US-BRISTOL-MYERS SQUIBB COMPANY-13079033

PATIENT
  Age: 4 Week
  Sex: Male

DRUGS (6)
  1. CAFFEINE CITRATE [Suspect]
     Dosage: LOT #LFD08-EXP 6/30/07,LOT #-LED07-EXP 5/30/07-LOT #LJD11 EXP 9/30/07,LOT #LED18-EXP DATE-5/30/07
     Route: 048
  2. AMOXICILLIN [Concomitant]
     Route: 048
     Dates: start: 20050809
  3. CHLORTHIAZIDE TAB [Concomitant]
     Route: 048
     Dates: start: 20050809
  4. SPIRONOLACTONE [Concomitant]
     Dates: start: 20050809
  5. POTASSIUM CHLORIDE [Concomitant]
     Route: 048
     Dates: start: 20050809
  6. SODIUM CHLORIDE [Concomitant]
     Route: 048
     Dates: start: 20050809

REACTIONS (1)
  - DRUG TOXICITY [None]
